FAERS Safety Report 5127072-3 (Version None)
Quarter: 2006Q4

REPORT INFORMATION
  Report Type: 
  Country: None (occurrence: None)
  Receive Date: 20061013
  Receipt Date: 20061009
  Transmission Date: 20070319
  Serious: Yes (Other)
  Sender: FDA-Public Use
  Company Number: GB-BRISTOL-MYERS SQUIBB COMPANY-13536792

PATIENT
  Age: 36 Year
  Sex: Female

DRUGS (3)
  1. ABILIFY [Suspect]
     Route: 048
  2. AMPHETAMINE SULFATE [Concomitant]
  3. CLOZAPINE [Concomitant]

REACTIONS (2)
  - PREGNANCY [None]
  - STILLBIRTH [None]
